FAERS Safety Report 26000835 (Version 1)
Quarter: 2025Q4

REPORT INFORMATION
  Report Type: Spontaneous
  Country: US (occurrence: US)
  Receive Date: 20251105
  Receipt Date: 20251105
  Transmission Date: 20260118
  Serious: No
  Sender: ANI
  Company Number: US-ANIPHARMA-2025-US-043328

PATIENT
  Age: 49 Year
  Sex: Female
  Weight: 89.81 kg

DRUGS (9)
  1. PREDNISONE [Concomitant]
     Active Substance: PREDNISONE
  2. PROBENECID [Concomitant]
     Active Substance: PROBENECID
  3. ALBUTEROL [Concomitant]
     Active Substance: ALBUTEROL
  4. ALLOPURINOL [Concomitant]
     Active Substance: ALLOPURINOL
  5. CONSTULOSE [Concomitant]
     Active Substance: LACTULOSE
  6. DICYCLOMINE [Concomitant]
     Active Substance: DICYCLOMINE HYDROCHLORIDE
  7. METHOCARBAMOL [Concomitant]
     Active Substance: METHOCARBAMOL
  8. PANTOPRAZOLE [Concomitant]
     Active Substance: PANTOPRAZOLE
  9. CORTICOTROPIN [Suspect]
     Active Substance: CORTICOTROPIN
     Indication: Gout
     Dosage: 40 UNITS TWICE A WEEK
     Route: 058
     Dates: start: 20250909, end: 20250912

REACTIONS (3)
  - Arthralgia [Recovered/Resolved]
  - Pain [Recovered/Resolved]
  - Chills [Recovered/Resolved]

NARRATIVE: CASE EVENT DATE: 20250910
